FAERS Safety Report 4774581-2 (Version None)
Quarter: 2005Q3

REPORT INFORMATION
  Report Type: 
  Country: None (occurrence: None)
  Receive Date: 20050914
  Receipt Date: 20041025
  Transmission Date: 20060218
  Serious: Yes (Hospitalization)
  Sender: FDA-Public Use
  Company Number: 163-20785-04100735

PATIENT
  Age: 73 Year
  Sex: Male
  Weight: 86.8 kg

DRUGS (22)
  1. THALOMID [Suspect]
     Indication: MULTIPLE MYELOMA
     Dosage: SEE IMAGE
     Route: 048
     Dates: start: 20050112, end: 20050125
  2. THALOMID [Suspect]
     Indication: MULTIPLE MYELOMA
     Dosage: SEE IMAGE
     Route: 048
     Dates: start: 20040501
  3. THALOMID [Suspect]
     Indication: MULTIPLE MYELOMA
     Dosage: SEE IMAGE
     Route: 048
     Dates: start: 20040529
  4. THALOMID [Suspect]
     Indication: MULTIPLE MYELOMA
     Dosage: SEE IMAGE
     Route: 048
     Dates: start: 20041218
  5. MELPHALAN (MELPHALAN) [Suspect]
     Indication: MULTIPLE MYELOMA
     Dosage: SEE IMAGE
     Route: 042
     Dates: start: 20040629, end: 20040629
  6. MELPHALAN (MELPHALAN) [Suspect]
     Indication: MULTIPLE MYELOMA
     Dosage: SEE IMAGE
     Route: 042
     Dates: start: 20040902, end: 20040902
  7. VELCADE [Suspect]
     Indication: MULTIPLE MYELOMA
     Dosage: 2 MG, 4 DAYS/CYCLE, INTRAVENOUS
     Route: 042
     Dates: start: 20040501, end: 20050327
  8. DEXAMETHASONE [Suspect]
     Indication: MULTIPLE MYELOMA
     Dosage: 40 MG, DAILY 4 DAYS/CYCLE, ORAL
     Route: 048
     Dates: start: 20040501, end: 20050320
  9. CISPLATIN [Suspect]
     Indication: MULTIPLE MYELOMA
     Dosage: 15 MG, DAILY 4 DAYS/CYCLE, INTRAVENOUS
     Route: 042
     Dates: start: 20040501, end: 20050320
  10. ADRIAMYCIN PFS [Suspect]
     Indication: MULTIPLE MYELOMA
     Dosage: 15 MG, DAILY 4 DAYS/CYCLE, INTRAVENOUS
     Route: 042
     Dates: start: 20040501, end: 20050320
  11. CYCLOPHOSPHAMIDE [Suspect]
     Indication: MULTIPLE MYELOMA
     Dosage: 600 MG, DAILY 4 DAYS/CYCLE, INTRAVENOUS
     Route: 042
     Dates: start: 20040501, end: 20050320
  12. ETOPOSIDE [Suspect]
     Indication: MULTIPLE MYELOMA
     Dosage: 60 MG, DAILY 4 DAYS/CYCLE, INTRAVENOUS
     Route: 042
     Dates: start: 20040501, end: 20050320
  13. MULTI-VITAMINS [Concomitant]
  14. FOLIC ACID [Concomitant]
  15. ACYCLOVIR [Concomitant]
  16. PROTONIX [Concomitant]
  17. ATIVAN [Concomitant]
  18. SYNTHROID [Concomitant]
  19. PENTAMIDINE [Concomitant]
  20. DIFLUCAN [Concomitant]
  21. MAGNESIUM OXIDE [Concomitant]
  22. PROCRIT [Concomitant]

REACTIONS (14)
  - ANXIETY [None]
  - COLITIS [None]
  - COUGH [None]
  - DIARRHOEA [None]
  - FEBRILE NEUTROPENIA [None]
  - HYPERSENSITIVITY [None]
  - NAUSEA [None]
  - PANCYTOPENIA [None]
  - PYREXIA [None]
  - RASH [None]
  - STAPHYLOCOCCAL BACTERAEMIA [None]
  - STAPHYLOCOCCAL INFECTION [None]
  - THROMBOCYTOPENIA [None]
  - VOMITING [None]
